FAERS Safety Report 12912061 (Version 1)
Quarter: 2016Q4

REPORT INFORMATION
  Report Type: Spontaneous
  Country: US (occurrence: US)
  Receive Date: 20161104
  Receipt Date: 20161104
  Transmission Date: 20170207
  Serious: No
  Sender: FDA-Public Use
  Company Number: US-TEVA-677914USA

PATIENT
  Age: 35 Year
  Sex: Female

DRUGS (1)
  1. RIBAVIRIN. [Suspect]
     Active Substance: RIBAVIRIN
     Dosage: THE SUSPECT MEDICATION WAS TAKEN BY THE FATHER
     Route: 065
     Dates: start: 20160224

REACTIONS (2)
  - Exposure during pregnancy [Unknown]
  - Blighted ovum [Unknown]

NARRATIVE: CASE EVENT DATE: 20160613
